FAERS Safety Report 7760961-X (Version None)
Quarter: 2011Q3

REPORT INFORMATION
  Report Type: 
  Country: None (occurrence: None)
  Receive Date: 20110920
  Receipt Date: 20110915
  Transmission Date: 20111222
  Serious: Yes (Hospitalization)
  Sender: FDA-Public Use
  Company Number: FR-BRISTOL-MYERS SQUIBB COMPANY-15924178

PATIENT
  Age: 55 Year
  Sex: Female

DRUGS (3)
  1. CARBOPLATIN [Suspect]
     Indication: LUNG ADENOCARCINOMA
     Dosage: C3:05JAN2011
     Dates: start: 20101124
  2. ARIMIDEX [Suspect]
     Indication: BREAST CANCER
     Dosage: 1DF:ONE INTAKE DAILY
     Route: 048
     Dates: start: 20101222, end: 20110121
  3. TAXOL [Suspect]
     Indication: LUNG ADENOCARCINOMA
     Dosage: C3:05JAN2011
     Route: 042
     Dates: start: 20101124, end: 20110105

REACTIONS (3)
  - PULMONARY EMBOLISM [None]
  - BUNDLE BRANCH BLOCK RIGHT [None]
  - ANAEMIA [None]
